FAERS Safety Report 22141091 (Version 1)
Quarter: 2023Q1

REPORT INFORMATION
  Report Type: Spontaneous
  Country: US (occurrence: None)
  Receive Date: 20230324
  Receipt Date: 20230324
  Transmission Date: 20230418
  Serious: Yes (Other)
  Sender: FDA-Public Use
  Company Number: None

PATIENT
  Age: 80 Year
  Sex: Male
  Weight: 75.4 kg

DRUGS (1)
  1. AMIODARONE [Suspect]
     Active Substance: AMIODARONE
     Indication: Atrial fibrillation
     Dates: start: 20221226

REACTIONS (9)
  - Pulmonary oedema [None]
  - Acute respiratory failure [None]
  - Cardiac failure congestive [None]
  - Pulseless electrical activity [None]
  - Cardiac arrest [None]
  - Ventricular fibrillation [None]
  - Drug interaction [None]
  - Pulmonary toxicity [None]
  - Secretion discharge [None]

NARRATIVE: CASE EVENT DATE: 20230211
